FAERS Safety Report 15191843 (Version 4)
Quarter: 2018Q3

REPORT INFORMATION
  Report Type: Report from Study
  Country: US (occurrence: US)
  Receive Date: 20180724
  Receipt Date: 20180827
  Transmission Date: 20181010
  Serious: Yes (Hospitalization)
  Sender: FDA-Public Use
  Company Number: US-ACTELION-A-US2018-175238

PATIENT
  Age: 68 Year
  Sex: Female
  Weight: 75.28 kg

DRUGS (5)
  1. VELETRI [Suspect]
     Active Substance: EPOPROSTENOL
     Dosage: 6 NG/KG, PER MIN
     Route: 042
     Dates: start: 20180729
  2. REVATIO [Concomitant]
     Active Substance: SILDENAFIL CITRATE
  3. AMLODIPINE [Concomitant]
     Active Substance: AMLODIPINE BESYLATE
  4. VELETRI [Suspect]
     Active Substance: EPOPROSTENOL
     Indication: PULMONARY HYPERTENSION
     Dosage: 4 NG/KG, PER MIN
     Route: 042
  5. VELETRI [Suspect]
     Active Substance: EPOPROSTENOL
     Dosage: 2 NG/KG, PER MIN
     Route: 042

REACTIONS (10)
  - Catheter site erythema [Unknown]
  - Pain [Unknown]
  - Headache [Unknown]
  - Catheter site haemorrhage [Unknown]
  - Gastrointestinal disorder [Unknown]
  - Nausea [Unknown]
  - Gastrointestinal inflammation [Not Recovered/Not Resolved]
  - Device breakage [Unknown]
  - Abdominal pain upper [Not Recovered/Not Resolved]
  - Diarrhoea [Not Recovered/Not Resolved]
